FAERS Safety Report 4512824-0 (Version None)
Quarter: 2004Q4

REPORT INFORMATION
  Report Type: 
  Country: None (occurrence: None)
  Receive Date: 20041130
  Receipt Date: 20041118
  Transmission Date: 20050328
  Serious: Yes (Hospitalization, Other)
  Sender: FDA-Public Use
  Company Number: AU-JNJFOC-20041003154

PATIENT
  Sex: Female
  Weight: 42 kg

DRUGS (2)
  1. REMICADE [Suspect]
     Indication: CROHN'S DISEASE
     Dosage: THIRTEENTH INFUSION
     Route: 042
  2. IMURAN [Concomitant]

REACTIONS (1)
  - CLONIC CONVULSION [None]
